FAERS Safety Report 8816979 (Version 2)
Quarter: 2012Q4

REPORT INFORMATION
  Report Type: Spontaneous
  Country: DE (occurrence: None)
  Receive Date: 20121002
  Receipt Date: 20121026
  Transmission Date: 20130627
  Serious: Yes (Death, Life-Threatening)
  Sender: FDA-Public Use
  Company Number: 2012DEPDE00449

PATIENT
  Sex: Female
  Weight: 65 kg

DRUGS (1)
  1. DEPOCYTE [Suspect]
     Indication: MENINGEAL CARCINOMATOSIS
     Route: 037
     Dates: start: 20120824, end: 20120824

REACTIONS (4)
  - Meningitis bacterial [None]
  - CSF granulocyte count abnormal [None]
  - Brain oedema [None]
  - Dysphagia [None]
